FAERS Safety Report 9653900 (Version 2)
Quarter: 2014Q1

REPORT INFORMATION
  Report Type: Spontaneous
  Country: US (occurrence: US)
  Receive Date: 20131029
  Receipt Date: 20140206
  Transmission Date: 20141002
  Serious: Yes (Hospitalization)
  Sender: FDA-Public Use
  Company Number: US-BIOGENIDEC-2013BI081649

PATIENT
  Sex: Female

DRUGS (1)
  1. TECFIDERA [Suspect]
     Indication: MULTIPLE SCLEROSIS

REACTIONS (6)
  - Vomiting [Recovered/Resolved]
  - Nausea [Unknown]
  - Urticaria [Recovered/Resolved]
  - Hypersensitivity [Recovered/Resolved]
  - Abdominal discomfort [Recovered/Resolved]
  - Lymphadenitis [Recovered/Resolved]
